FAERS Safety Report 7457779-4 (Version None)
Quarter: 2011Q2

REPORT INFORMATION
  Report Type: 
  Country: None (occurrence: None)
  Receive Date: 20110504
  Receipt Date: 20110429
  Transmission Date: 20111010
  Serious: Yes (Death, Other)
  Sender: FDA-Public Use
  Company Number: IN-ROCHE-774956

PATIENT
  Sex: Female
  Weight: 55 kg

DRUGS (3)
  1. RANITIDINE [Concomitant]
     Dates: start: 20100925, end: 20100928
  2. ONDANSETRON [Concomitant]
     Dates: start: 20100925, end: 20100928
  3. CAPECITABINE [Suspect]
     Indication: BREAST CANCER
     Dosage: FREQUENCY: CYCLICAL, (TWICE DAILY) FROM D1 TO D14 EVERY 3 WEEKS.
     Route: 048
     Dates: start: 20100925, end: 20100928

REACTIONS (4)
  - DIARRHOEA [None]
  - VOMITING [None]
  - DYSPNOEA [None]
  - DECREASED APPETITE [None]
